FAERS Safety Report 8594114-2 (Version None)
Quarter: 2012Q3

REPORT INFORMATION
  Report Type: 
  Country: None (occurrence: None)
  Receive Date: 20120814
  Receipt Date: 20120806
  Transmission Date: 20120928
  Serious: Yes (Hospitalization, Other)
  Sender: FDA-Public Use
  Company Number: US-009507513-1202USA00861

PATIENT

DRUGS (2)
  1. FOSAMAX [Suspect]
     Indication: OSTEOPENIA
     Dosage: 70 MG, QW
     Route: 048
     Dates: start: 20000101, end: 20060101
  2. VITAMIN D [Concomitant]
     Indication: OSTEOPENIA
     Dosage: UNK
     Dates: start: 20000101

REACTIONS (10)
  - UTERINE DILATION AND CURETTAGE [None]
  - BACK PAIN [None]
  - UPPER LIMB FRACTURE [None]
  - OSTEONECROSIS [None]
  - ADVERSE EVENT [None]
  - ORAL SURGERY [None]
  - HYPERTENSION [None]
  - LIMB ASYMMETRY [None]
  - FEMUR FRACTURE [None]
  - TOOTH EXTRACTION [None]
